FAERS Safety Report 8139909-4 (Version None)
Quarter: 2012Q1

REPORT INFORMATION
  Report Type: 
  Country: None (occurrence: None)
  Receive Date: 20120215
  Receipt Date: 20120125
  Transmission Date: 20120608
  Serious: Yes (Hospitalization, Other)
  Sender: FDA-Public Use
  Company Number: JP-ROCHE-1036464

PATIENT
  Sex: Female
  Weight: 110 kg

DRUGS (12)
  1. ADVAIR DISKUS 100/50 [Concomitant]
  2. OMALIZUMAB [Suspect]
     Indication: ASTHMA
     Route: 058
     Dates: start: 20111207
  3. SYMBICORT [Concomitant]
     Dates: start: 20110914
  4. MORPHINE [Concomitant]
     Dates: start: 20111117
  5. SINGULAIR [Concomitant]
     Dates: start: 20110607
  6. DECADRON [Concomitant]
     Dates: start: 20110607
  7. ALBUTEROL SULFATE AUTOHALER [Concomitant]
     Dates: start: 20110607
  8. BONOTEO [Concomitant]
     Dates: start: 20111117
  9. THEOLONG [Concomitant]
     Dates: start: 20110607
  10. WARFARIN SODIUM [Concomitant]
     Dates: start: 20101122
  11. SEROQUEL [Concomitant]
     Dates: start: 20110329
  12. RABEPRAZOLE SODIUM [Concomitant]
     Dates: start: 20110517

REACTIONS (2)
  - ANAPHYLACTOID REACTION [None]
  - PULMONARY EMBOLISM [None]
